FAERS Safety Report 5876976-2 (Version None)
Quarter: 2008Q3

REPORT INFORMATION
  Report Type: 
  Country: None (occurrence: None)
  Receive Date: 20080910
  Receipt Date: 20080828
  Transmission Date: 20090109
  Serious: Yes (Other)
  Sender: FDA-Public Use
  Company Number: PHNU2008DE00524

PATIENT
  Sex: Female

DRUGS (1)
  1. IMMUNOSPORIN [Suspect]
     Indication: PSORIASIS
     Dosage: ABOUT 75 MG DAILY
     Route: 048
     Dates: start: 20050101, end: 20080101

REACTIONS (2)
  - BRAIN INJURY [None]
  - HEADACHE [None]
